FAERS Safety Report 13238101 (Version 1)
Quarter: 2017Q1

REPORT INFORMATION
  Report Type: Spontaneous
  Country: US (occurrence: US)
  Receive Date: 20170215
  Receipt Date: 20170215
  Transmission Date: 20170428
  Serious: Yes (Other)
  Sender: FDA-Public Use
  Company Number: None

PATIENT
  Age: 70 Year
  Sex: Female
  Weight: 74.25 kg

DRUGS (7)
  1. CARBAMAZEPINE. [Concomitant]
     Active Substance: CARBAMAZEPINE
  2. VITAMIN B-2 [Concomitant]
  3. SYNTHROID [Concomitant]
     Active Substance: LEVOTHYROXINE SODIUM
  4. VITAMIN D [Concomitant]
     Active Substance: CHOLECALCIFEROL
  5. MAGNESIUM [Concomitant]
     Active Substance: MAGNESIUM
  6. PROLIA [Suspect]
     Active Substance: DENOSUMAB
     Indication: OSTEOPOROSIS
     Dosage: SUBCUTANEOUS 2 X PER YEAR?
     Route: 058
     Dates: start: 20161207, end: 20161207
  7. MIRALAX [Concomitant]
     Active Substance: POLYETHYLENE GLYCOL 3350

REACTIONS (2)
  - Headache [None]
  - Trigeminal neuralgia [None]

NARRATIVE: CASE EVENT DATE: 20161213
